FAERS Safety Report 7557807-1 (Version None)
Quarter: 2011Q2

REPORT INFORMATION
  Report Type: 
  Country: None (occurrence: None)
  Receive Date: 20110620
  Receipt Date: 20110609
  Transmission Date: 20111010
  Serious: Yes (Hospitalization)
  Sender: FDA-Public Use
  Company Number: FR-BRISTOL-MYERS SQUIBB COMPANY-15841612

PATIENT
  Age: 89 Year
  Sex: Male
  Weight: 71 kg

DRUGS (11)
  1. EFFEXOR [Concomitant]
     Indication: DEPRESSION
  2. AUGMENTIN '125' [Concomitant]
     Dates: start: 20110502, end: 20110506
  3. GLUCOPHAGE [Suspect]
     Indication: TYPE 2 DIABETES MELLITUS
     Dosage: FILM COATED TABS
     Route: 048
     Dates: start: 20110506, end: 20110507
  4. ALPRAZOLAM [Concomitant]
     Indication: ANXIETY
     Route: 048
  5. IMOVANE [Concomitant]
     Indication: INSOMNIA
     Dosage: FILM COATED TABS
     Route: 048
  6. ACETAMINOPHEN [Concomitant]
     Indication: PAIN
     Dosage: TABLET
     Route: 048
  7. MIRTAZAPINE [Concomitant]
     Indication: DEPRESSION
     Route: 048
  8. CALCIUM CARBONATE [Concomitant]
     Indication: OSTEOPOROSIS PROPHYLAXIS
     Route: 048
  9. COUMADIN [Concomitant]
     Indication: PULMONARY EMBOLISM
     Route: 048
  10. MEMANTINE HYDROCHLORIDE [Concomitant]
     Indication: DEMENTIA
     Route: 048
  11. LAROSCORBINE [Concomitant]
     Indication: VITAMIN C DEFICIENCY
     Route: 048

REACTIONS (1)
  - HEPATIC ENZYME INCREASED [None]
